FAERS Safety Report 4849523-1 (Version None)
Quarter: 2005Q4

REPORT INFORMATION
  Report Type: 
  Country: None (occurrence: None)
  Receive Date: 20051207
  Receipt Date: 20051125
  Transmission Date: 20060501
  Serious: Yes (Hospitalization)
  Sender: FDA-Public Use
  Company Number: J081-002-002113

PATIENT
  Age: 86 Year
  Sex: Female
  Weight: 37.4 kg

DRUGS (4)
  1. ARICEPT [Suspect]
     Indication: DEMENTIA ALZHEIMER'S TYPE
     Dosage: 5 MG, 1 IN 1 D, ORAL
     Route: 048
     Dates: start: 20000707
  2. ARICEPT [Suspect]
     Indication: DEMENTIA ALZHEIMER'S TYPE
     Dosage: 5 MG, 1 IN 1 D, ORAL
     Route: 048
     Dates: end: 20051106
  3. SEROQUEL [Concomitant]
  4. SEFTAC                   (TEPRENONE) [Concomitant]

REACTIONS (6)
  - BLISTER [None]
  - FEELING HOT [None]
  - HAEMORRHAGE [None]
  - PEMPHIGOID [None]
  - PRURITUS [None]
  - SKIN EXFOLIATION [None]
